FAERS Safety Report 23223422 (Version 2)
Quarter: 2023Q4

REPORT INFORMATION
  Report Type: Spontaneous
  Country: PK (occurrence: PK)
  Receive Date: 20231123
  Receipt Date: 20231225
  Transmission Date: 20240109
  Serious: Yes (Other)
  Sender: FDA-Public Use
  Company Number: PK-PFIZER INC-PV202300186854

PATIENT
  Age: 73 Year
  Sex: Female
  Weight: 72 kg

DRUGS (9)
  1. ENBREL [Suspect]
     Active Substance: ETANERCEPT
     Indication: Rheumatoid arthritis
     Dosage: 50 MG, WEEKLY
     Route: 058
     Dates: start: 20230720
  2. LEFLUNOMIDE [Concomitant]
     Active Substance: LEFLUNOMIDE
     Dosage: 1 TAB IN MORNING
     Route: 065
  3. FOLIC ACID [Concomitant]
     Active Substance: FOLIC ACID
     Dosage: 1 TAB IN MORNING
     Route: 065
  4. DELTACORTRIL [Concomitant]
     Active Substance: PREDNISOLONE
     Dosage: 2 TABS IN MORNING AFTER MEAL FOR 1 WEEK, AFTER MEAL
     Route: 065
  5. DELTACORTRIL [Concomitant]
     Active Substance: PREDNISOLONE
     Dosage: 1 AND A HALF  IN MORNING AFTER MEAL FOR 1 WEEK, AFTER MEAL
     Route: 065
  6. DELTACORTRIL [Concomitant]
     Active Substance: PREDNISOLONE
     Dosage: 1 TAB  IN MORNING AFTER MEAL FOR 1 WEEK, AFTER MEAL
     Route: 065
  7. FAMOT [Concomitant]
     Dosage: 1 TAB IN MORNING BEFORE MEAL
     Route: 065
  8. NUBEROL [Concomitant]
     Dosage: 1 TAB IN EVENING AFTER MEAL
     Route: 065
  9. PANADOL [Concomitant]
     Active Substance: ACETAMINOPHEN
     Dosage: 2 TABS ONCE A DAY AFTER MEAL AS PER NEED
     Route: 065

REACTIONS (5)
  - Chronic kidney disease [Unknown]
  - Fatigue [Unknown]
  - Hypertension [Unknown]
  - Condition aggravated [Unknown]
  - Haemoglobin decreased [Unknown]
